FAERS Safety Report 8543889-7 (Version None)
Quarter: 2012Q3

REPORT INFORMATION
  Report Type: 
  Country: None (occurrence: None)
  Receive Date: 20120727
  Receipt Date: 20120727
  Transmission Date: 20120928
  Serious: Yes (Hospitalization, Other)
  Sender: FDA-Public Use
  Company Number: PHHY2011AU116394

PATIENT
  Sex: Female

DRUGS (1)
  1. ZOLEDRONOC ACID [Suspect]
     Dosage: 5 MG
     Route: 042
     Dates: start: 20090624

REACTIONS (5)
  - BLOOD PRESSURE ABNORMAL [None]
  - MALAISE [None]
  - SYNCOPE [None]
  - TACHYCARDIA [None]
  - HYPERTENSION [None]
